FAERS Safety Report 5388944-8 (Version None)
Quarter: 2007Q3

REPORT INFORMATION
  Report Type: 
  Country: None (occurrence: None)
  Receive Date: 20070717
  Receipt Date: 20070706
  Transmission Date: 20080115
  Serious: Yes (Other)
  Sender: FDA-Public Use
  Company Number: PHNU2007DE02428

PATIENT
  Sex: Male

DRUGS (1)
  1. VOLTAREN [Suspect]

REACTIONS (2)
  - DIARRHOEA [None]
  - DRUG EXPOSURE VIA BREAST MILK [None]
